FAERS Safety Report 6267209-6 (Version None)
Quarter: 2009Q3

REPORT INFORMATION
  Report Type: 
  Country: None (occurrence: None)
  Receive Date: 20090714
  Receipt Date: 20090703
  Transmission Date: 20100115
  Serious: Yes (Other)
  Sender: FDA-Public Use
  Company Number: CA-JNJFOC-20090701942

PATIENT
  Age: 20 Year
  Sex: Male
  Weight: 135 kg

DRUGS (7)
  1. REMICADE [Suspect]
     Indication: ANKYLOSING SPONDYLITIS
     Dosage: DOSE OF 600MG INCREASED TO 700MG
     Route: 042
  2. INDERAL [Concomitant]
  3. AMITRIPTYLINE [Concomitant]
  4. CELEBREX [Concomitant]
  5. NEXIUM [Concomitant]
  6. ALL OTHER THERAPEUTIC PRODUCTS [Concomitant]
  7. OXYCET [Concomitant]

REACTIONS (1)
  - ABNORMAL WEIGHT GAIN [None]
